FAERS Safety Report 7437423-2 (Version None)
Quarter: 2011Q2

REPORT INFORMATION
  Report Type: 
  Country: None (occurrence: None)
  Receive Date: 20110426
  Receipt Date: 20100427
  Transmission Date: 20111010
  Serious: No
  Sender: FDA-Public Use
  Company Number: US-PFIZER INC-2010017878

PATIENT
  Sex: Female
  Weight: 73.9 kg

DRUGS (6)
  1. CLONAZEPAM [Concomitant]
     Dosage: UNK
  2. PROZAC [Concomitant]
     Dosage: UNK
  3. ESTRADIOL [Suspect]
     Indication: ATROPHIC VULVOVAGINITIS
     Dosage: 2 MG, EVERY 3 MONTHS
     Route: 067
     Dates: start: 20091028, end: 20100128
  4. TYSABRI [Concomitant]
     Dosage: UNK
  5. AMANTADINE [Concomitant]
     Dosage: UNK
  6. MIRAPEX [Concomitant]
     Dosage: UNK

REACTIONS (4)
  - FATIGUE [None]
  - HYPERSOMNIA [None]
  - WEIGHT INCREASED [None]
  - BLOOD TESTOSTERONE INCREASED [None]
